FAERS Safety Report 15395694 (Version 1)
Quarter: 2018Q3

REPORT INFORMATION
  Report Type: Spontaneous
  Country: SK (occurrence: SK)
  Receive Date: 20180918
  Receipt Date: 20180918
  Transmission Date: 20181010
  Serious: Yes (Life-Threatening, Hospitalization, Other)
  Sender: FDA-Public Use
  Company Number: SK-JNJFOC-20180724334

PATIENT
  Age: 4 Year
  Sex: Male
  Weight: 12.5 kg

DRUGS (10)
  1. DIAZEPAM. [Interacting]
     Active Substance: DIAZEPAM
     Indication: TETANUS
     Route: 065
  2. TRAMADOL HYDROCHLORIDE. [Suspect]
     Active Substance: TRAMADOL HYDROCHLORIDE
     Indication: TETANUS
     Route: 065
  3. MIDAZOLAM [Interacting]
     Active Substance: MIDAZOLAM HYDROCHLORIDE
     Indication: MUSCLE SPASMS
     Route: 065
  4. MIDAZOLAM [Interacting]
     Active Substance: MIDAZOLAM HYDROCHLORIDE
     Indication: TETANUS
     Route: 065
  5. TRAMADOL HYDROCHLORIDE. [Suspect]
     Active Substance: TRAMADOL HYDROCHLORIDE
     Indication: MUSCLE SPASMS
     Route: 065
  6. DIAZEPAM. [Interacting]
     Active Substance: DIAZEPAM
     Indication: MUSCLE SPASMS
     Route: 065
  7. METAMIZOLE [Interacting]
     Active Substance: METAMIZOLE
     Indication: MUSCLE SPASMS
     Route: 065
  8. CLINDAMYCIN. [Suspect]
     Active Substance: CLINDAMYCIN
     Indication: TETANUS
     Route: 065
  9. PENICILLIN NOS [Concomitant]
     Active Substance: PENICILLIN
     Indication: PRODUCT USED FOR UNKNOWN INDICATION
     Route: 065
  10. IMMUNOGLOBULIN HUMAN ANTI?TETANUS [Concomitant]
     Indication: PRODUCT USED FOR UNKNOWN INDICATION
     Route: 030

REACTIONS (3)
  - Respiratory failure [Recovered/Resolved]
  - Drug interaction [Recovered/Resolved]
  - Hypoventilation [Recovered/Resolved]
